FAERS Safety Report 21769849 (Version 1)
Quarter: 2022Q4

REPORT INFORMATION
  Report Type: Spontaneous
  Country: SE (occurrence: SE)
  Receive Date: 20221223
  Receipt Date: 20221223
  Transmission Date: 20230112
  Serious: Yes (Other)
  Sender: FDA-Public Use
  Company Number: SE-MPA-2022-021623

PATIENT
  Age: 9 Year
  Sex: Male

DRUGS (3)
  1. SERTRALINE [Suspect]
     Active Substance: SERTRALINE HYDROCHLORIDE
     Indication: Anxiety
     Dosage: 50 MILLIGRAM, DAILY
     Route: 048
     Dates: start: 20220518
  2. Lergigan mite [Concomitant]
     Indication: Product used for unknown indication
     Dosage: 1-2VBMAX3/D
     Route: 065
     Dates: start: 20220222
  3. Atomoxetin Actavis [Concomitant]
     Indication: Product used for unknown indication
     Dosage: 1X1TV
     Route: 065
     Dates: start: 20210917

REACTIONS (3)
  - Leukopenia [Recovering/Resolving]
  - Thrombocytopenia [Recovering/Resolving]
  - Neutropenia [Recovering/Resolving]

NARRATIVE: CASE EVENT DATE: 20220603
